FAERS Safety Report 4366219-3 (Version None)
Quarter: 2004Q2

REPORT INFORMATION
  Report Type: 
  Country: None (occurrence: None)
  Receive Date: 20040527
  Receipt Date: 20040326
  Transmission Date: 20050107
  Serious: No
  Sender: FDA-Public Use
  Company Number: PR-BRISTOL-MYERS SQUIBB COMPANY-12545463

PATIENT
  Age: 32 Year
  Sex: Female

DRUGS (1)
  1. DEFINITY [Suspect]
     Dates: start: 20040326, end: 20040326

REACTIONS (4)
  - ABDOMINAL DISCOMFORT [None]
  - ARTHRALGIA [None]
  - MALAISE [None]
  - VOMITING [None]
